FAERS Safety Report 11593304 (Version 11)
Quarter: 2016Q2

REPORT INFORMATION
  Report Type: Report from Study
  Country: CA (occurrence: CA)
  Receive Date: 20151005
  Receipt Date: 20160422
  Transmission Date: 20160815
  Serious: Yes (Other)
  Sender: FDA-Public Use
  Company Number: CA-ROCHE-1596487

PATIENT
  Age: 51 Year
  Sex: Female

DRUGS (3)
  1. CARBOPLATIN. [Concomitant]
     Active Substance: CARBOPLATIN
  2. KADCYLA [Suspect]
     Active Substance: ADO-TRASTUZUMAB EMTANSINE
     Indication: HER-2 POSITIVE BREAST CANCER
     Route: 042
     Dates: start: 20150529, end: 20160205
  3. HERCEPTIN [Suspect]
     Active Substance: TRASTUZUMAB
     Indication: HER-2 POSITIVE BREAST CANCER
     Dosage: STOP DATE: AROUND APR/MAY 2015
     Route: 042
     Dates: start: 20141201

REACTIONS (28)
  - Alanine aminotransferase increased [Unknown]
  - Eosinophil count decreased [Unknown]
  - Blood alkaline phosphatase increased [Unknown]
  - Tooth fracture [Recovered/Resolved]
  - Protein total increased [Unknown]
  - Epistaxis [Unknown]
  - Nausea [Unknown]
  - Dizziness [Recovered/Resolved]
  - Mean cell haemoglobin concentration decreased [Unknown]
  - Erythema [Unknown]
  - Monocyte count increased [Unknown]
  - Neutrophil count decreased [Unknown]
  - Madarosis [Unknown]
  - White blood cell count decreased [Unknown]
  - Nasopharyngitis [Recovering/Resolving]
  - Platelet count decreased [Unknown]
  - Blood calcium increased [Unknown]
  - Mean platelet volume decreased [Unknown]
  - Myalgia [Unknown]
  - Lymphocyte count increased [Unknown]
  - Lymphocyte count decreased [Unknown]
  - Gamma-glutamyltransferase increased [Unknown]
  - Blood phosphorus increased [Unknown]
  - Hepatic enzyme increased [Not Recovered/Not Resolved]
  - Platelet anisocytosis [Unknown]
  - Aspartate aminotransferase increased [Unknown]
  - Hypohidrosis [Not Recovered/Not Resolved]
  - Pruritus [Unknown]

NARRATIVE: CASE EVENT DATE: 20150729
